FAERS Safety Report 5961735-2 (Version None)
Quarter: 2008Q4

REPORT INFORMATION
  Report Type: 
  Country: None (occurrence: None)
  Receive Date: 20081121
  Receipt Date: 20081112
  Transmission Date: 20090506
  Serious: Yes (Hospitalization)
  Sender: FDA-Public Use
  Company Number: DE-JNJFOC-20081103583

PATIENT
  Sex: Female

DRUGS (3)
  1. DOXORUBICIN HCL [Suspect]
     Indication: UTERINE LEIOMYOSARCOMA
     Route: 042
  2. CARBOPLATIN [Suspect]
     Indication: UTERINE LEIOMYOSARCOMA
     Route: 065
  3. BISOPROLOL FUMARATE [Concomitant]
     Route: 048

REACTIONS (1)
  - ARTERIOSCLEROSIS [None]
